FAERS Safety Report 9092079 (Version 1)
Quarter: 2013Q1

REPORT INFORMATION
  Report Type: Spontaneous
  Country: US (occurrence: US)
  Receive Date: 20130131
  Receipt Date: 20130131
  Transmission Date: 20140127
  Serious: No
  Sender: FDA-Public Use
  Company Number: US-ABBOTT-12P-163-1002239-00

PATIENT
  Sex: 0

DRUGS (1)
  1. HUMIRA [Suspect]
     Indication: PRODUCT USED FOR UNKNOWN INDICATION
     Route: 058

REACTIONS (10)
  - Nonspecific reaction [Unknown]
  - Feeling cold [Unknown]
  - Back pain [Unknown]
  - Spinal pain [Unknown]
  - Neck pain [Unknown]
  - Headache [Unknown]
  - Lethargy [Unknown]
  - Respiratory rate increased [Unknown]
  - Paraesthesia [Unknown]
  - Paraesthesia [Unknown]
